FAERS Safety Report 6940409-5 (Version None)
Quarter: 2010Q3

REPORT INFORMATION
  Report Type: 
  Country: None (occurrence: None)
  Receive Date: 20100825
  Receipt Date: 20100823
  Transmission Date: 20110219
  Serious: Yes (Hospitalization)
  Sender: FDA-Public Use
  Company Number: JP-SANOFI-AVENTIS-2010SA046717

PATIENT
  Age: 63 Year
  Sex: Male

DRUGS (6)
  1. AMARYL [Suspect]
     Indication: DIABETES MELLITUS
     Route: 048
     Dates: start: 20100325
  2. INVESTIGATIONAL DRUG [Concomitant]
     Dates: start: 20081114, end: 20100519
  3. ASPIRIN [Concomitant]
     Dosage: DOSAGE UNKNOWN
     Route: 048
     Dates: start: 20081114, end: 20100618
  4. ASPIRIN [Concomitant]
     Dosage: DOSAGE UNKNOWN
     Route: 048
     Dates: start: 20100702, end: 20100709
  5. LIPITOR [Concomitant]
     Dosage: DOSAGE UNKNOWN
     Route: 048
     Dates: start: 20081114
  6. RABEPRAZOLE SODIUM [Concomitant]
     Dosage: DOSAGE UNKNOWN
     Route: 048
     Dates: start: 20081114

REACTIONS (1)
  - BLADDER CANCER [None]
